FAERS Safety Report 21678602 (Version 1)
Quarter: 2022Q4

REPORT INFORMATION
  Report Type: Spontaneous
  Country: CA (occurrence: CA)
  Receive Date: 20221203
  Receipt Date: 20221203
  Transmission Date: 20230113
  Serious: Yes (Hospitalization, Other)
  Sender: FDA-Public Use
  Company Number: None

PATIENT
  Age: 59 Year
  Sex: Female
  Weight: 100 kg

DRUGS (5)
  1. VICTOZA [Suspect]
     Active Substance: LIRAGLUTIDE
     Indication: Obesity
     Dosage: 0.25 MG 1 EVERY 1 WEEKS
     Route: 058
  2. VICTOZA [Suspect]
     Active Substance: LIRAGLUTIDE
     Indication: Product used for unknown indication
     Dosage: 0.5 MG 1 EVERY 1 WEEKS
     Route: 058
  3. VICTOZA [Suspect]
     Active Substance: LIRAGLUTIDE
     Dosage: 1 MG 1 EVERY 1 WEEKS
     Route: 058
  4. AMLODIPINE [Concomitant]
     Active Substance: AMLODIPINE BESYLATE
     Indication: Hypertension
     Dosage: UNK
  5. SYNTHROID [Concomitant]
     Active Substance: LEVOTHYROXINE SODIUM
     Indication: Hypothyroidism
     Dosage: UNK

REACTIONS (5)
  - C-reactive protein increased [Unknown]
  - Impaired gastric emptying [Unknown]
  - Dyspepsia [Unknown]
  - Renal impairment [Unknown]
  - Off label use [Unknown]
